APPROVED DRUG PRODUCT: BUTORPHANOL TARTRATE
Active Ingredient: BUTORPHANOL TARTRATE
Strength: 2MG/ML
Dosage Form/Route: INJECTABLE;INJECTION
Application: A078247 | Product #001
Applicant: HIKMA FARMACEUTICA SA
Approved: Apr 29, 2009 | RLD: No | RS: No | Type: DISCN